FAERS Safety Report 7993415-6 (Version None)
Quarter: 2011Q4

REPORT INFORMATION
  Report Type: 
  Country: None (occurrence: None)
  Receive Date: 20111219
  Receipt Date: 20101228
  Transmission Date: 20120403
  Serious: No
  Sender: FDA-Public Use
  Company Number: US-ASTRAZENECA-2010SE47429

PATIENT
  Age: 59 Year
  Sex: Female
  Weight: 59 kg

DRUGS (3)
  1. SYNTHROID [Concomitant]
     Indication: HYPOTHYROIDISM
  2. CRESTOR [Suspect]
     Route: 048
     Dates: start: 20100801, end: 20101101
  3. CRESTOR [Suspect]
     Indication: HYPERCHOLESTEROLAEMIA
     Route: 048
     Dates: start: 20100101, end: 20100801

REACTIONS (1)
  - ALOPECIA [None]
